FAERS Safety Report 7903340-4 (Version None)
Quarter: 2011Q4

REPORT INFORMATION
  Report Type: 
  Country: None (occurrence: None)
  Receive Date: 20111109
  Receipt Date: 20111107
  Transmission Date: 20120403
  Serious: Yes (Other)
  Sender: FDA-Public Use
  Company Number: US-PFIZER INC-2011273165

PATIENT
  Sex: Male
  Weight: 106.6 kg

DRUGS (12)
  1. NOVOLOG [Concomitant]
     Indication: DIABETES MELLITUS
     Dosage: 20 UNITS IN THE MORNING AND 22 UNITS AT NIGHT
  2. LANTUS [Concomitant]
     Indication: DIABETES MELLITUS
     Dosage: 42 UNITS DAILY AT BED TIME
  3. HYDROCHLOROTHIAZIDE [Concomitant]
     Indication: HYPERTENSION
     Dosage: 25 MG, 2X/DAY
  4. METFORMIN [Concomitant]
     Indication: DIABETES MELLITUS
     Dosage: 1000 MG, 2X/DAY
  5. HYDRALAZINE [Concomitant]
     Dosage: 50 MG, 4X/DAY
  6. LYRICA [Suspect]
     Indication: DIABETIC NEUROPATHY
     Dosage: 75 MG, DAILY
     Route: 048
     Dates: start: 20111001
  7. CLONIDINE [Concomitant]
     Indication: HYPERTENSION
     Dosage: 0.3 MG, 2X/DAY
  8. NIASPAN [Concomitant]
     Indication: BLOOD CHOLESTEROL INCREASED
     Dosage: 50 MG DAILY AT BED TIME
  9. MIRAPEX [Concomitant]
     Indication: RESTLESS LEGS SYNDROME
     Dosage: 1MG DAILY AT BED TIME
  10. WELCHOL [Concomitant]
     Indication: BLOOD CHOLESTEROL INCREASED
     Dosage: 600 MG, 2X/DAY
  11. LABETALOL [Concomitant]
     Indication: HYPERTENSION
     Dosage: 400 MG, 2X/DAY
  12. ALLOPURINOL [Concomitant]
     Indication: GOUT
     Dosage: 100 MG DAILY IN THE MORNING

REACTIONS (2)
  - OEDEMA PERIPHERAL [None]
  - FLUID RETENTION [None]
